FAERS Safety Report 16843662 (Version 1)
Quarter: 2019Q3

REPORT INFORMATION
  Report Type: Spontaneous
  Country: GB (occurrence: GB)
  Receive Date: 20190924
  Receipt Date: 20190924
  Transmission Date: 20191005
  Serious: Yes (Other)
  Sender: FDA-Public Use
  Company Number: GB-TEVA-2019-GB-1111021

PATIENT
  Sex: Male

DRUGS (7)
  1. DIHYDROCODEINE [Suspect]
     Active Substance: DIHYDROCODEINE
     Indication: PAIN
     Dosage: FOUR TIMES A DAY. TAKE WITH OR JUST AFTER FOOD.
  2. FERROUS FUMARATE [Suspect]
     Active Substance: FERROUS FUMARATE
     Indication: ANAEMIA
  3. FOLIC ACID. [Suspect]
     Active Substance: FOLIC ACID
     Indication: FOLATE DEFICIENCY
  4. OLANZAPINE. [Suspect]
     Active Substance: OLANZAPINE
  5. PROMETHAZINE HYDROCHLORIDE. [Suspect]
     Active Substance: PROMETHAZINE HYDROCHLORIDE
     Dosage: AT NIGHT.
  6. AZATHIOPRINE. [Suspect]
     Active Substance: AZATHIOPRINE
  7. ESCITALOPRAM [Suspect]
     Active Substance: ESCITALOPRAM OXALATE
     Dosage: EACH MORNING.

REACTIONS (2)
  - Autoscopy [Unknown]
  - Seizure [Unknown]
